FAERS Safety Report 14981779 (Version 1)
Quarter: 2018Q2

REPORT INFORMATION
  Report Type: Spontaneous
  Country: BR (occurrence: CA)
  Receive Date: 20180607
  Receipt Date: 20180607
  Transmission Date: 20180711
  Serious: Yes (Death, Hospitalization)
  Sender: FDA-Public Use
  Company Number: BR-BAXTER-2016BAX046857

PATIENT
  Age: 14 Month
  Sex: Female

DRUGS (9)
  1. PROCYTOX (CYCLOPHOSPHAMIDE) 2000MG/VIAL [Suspect]
     Active Substance: CYCLOPHOSPHAMIDE
     Indication: NEUROBLASTOMA
     Dosage: DOSAGE FORM: NOT SPECIFIED
     Route: 042
  2. VUMON [Suspect]
     Active Substance: TENIPOSIDE
     Indication: NEUROBLASTOMA
     Dosage: DOSAGE FORM: LIQUID INTRAVENOUS
     Route: 042
  3. VINCRISTINE SULPHATE [Suspect]
     Active Substance: VINCRISTINE SULFATE
     Indication: EVIDENCE BASED TREATMENT
  4. DOXORUBICIN [Suspect]
     Active Substance: DOXORUBICIN
     Indication: NEUROBLASTOMA
     Dosage: DOSAGE FORM: SOLUTION INTRAVENOUS
     Route: 042
  5. DOXORUBICIN [Suspect]
     Active Substance: DOXORUBICIN
     Indication: CHEMOTHERAPY
     Route: 065
  6. VINCRISTINE SULPHATE [Suspect]
     Active Substance: VINCRISTINE SULFATE
     Indication: CHEMOTHERAPY
     Route: 065
  7. CISPLATIN. [Concomitant]
     Active Substance: CISPLATIN
     Indication: NEUROBLASTOMA
     Route: 065
  8. DOXORUBICIN [Suspect]
     Active Substance: DOXORUBICIN
     Indication: EVIDENCE BASED TREATMENT
  9. VINCRISTINE SULPHATE [Suspect]
     Active Substance: VINCRISTINE SULFATE
     Indication: NEUROBLASTOMA
     Dosage: DOSAGE FORM: SOLUTION FOR INJECTION/ INFUSION
     Route: 065

REACTIONS (1)
  - Histiocytosis haematophagic [Fatal]
